FAERS Safety Report 13505577 (Version 1)
Quarter: 2017Q2

REPORT INFORMATION
  Report Type: Spontaneous
  Country: US (occurrence: US)
  Receive Date: 20170502
  Receipt Date: 20170502
  Transmission Date: 20170830
  Serious: No
  Sender: FDA-Public Use
  Company Number: US-ASTRAZENECA-2016SE72872

PATIENT
  Sex: Female
  Weight: 68 kg

DRUGS (5)
  1. BYDUREON [Suspect]
     Active Substance: EXENATIDE
     Indication: TYPE 2 DIABETES MELLITUS
     Route: 058
     Dates: start: 201606
  2. INSULIN [Concomitant]
     Active Substance: INSULIN NOS
  3. HUMALOG [Concomitant]
     Active Substance: INSULIN LISPRO
  4. LEVOMIR [Concomitant]
  5. METFORMIN [Concomitant]
     Active Substance: METFORMIN HYDROCHLORIDE

REACTIONS (1)
  - Injection site nodule [Not Recovered/Not Resolved]
